FAERS Safety Report 8462456-7 (Version None)
Quarter: 2012Q2

REPORT INFORMATION
  Report Type: 
  Country: None (occurrence: None)
  Receive Date: 20120625
  Receipt Date: 20120614
  Transmission Date: 20120825
  Serious: Yes (Other)
  Sender: FDA-Public Use
  Company Number: HR-ASTRAZENECA-2012SE39974

PATIENT
  Age: 24 Year
  Sex: Male
  Weight: 126 kg

DRUGS (4)
  1. ZYPREXA [Suspect]
     Route: 048
  2. ZYPREXA [Suspect]
     Indication: ACUTE PSYCHOSIS
     Route: 048
     Dates: start: 20111105
  3. NORMABEL (DIAZEPAM) [Concomitant]
     Indication: SLEEP DISORDER
     Route: 048
     Dates: start: 20120126
  4. SEROQUEL [Suspect]
     Indication: ACUTE PSYCHOSIS
     Route: 048
     Dates: start: 20120126

REACTIONS (4)
  - INCREASED APPETITE [None]
  - METABOLIC SYNDROME [None]
  - WEIGHT INCREASED [None]
  - OBESITY [None]
